FAERS Safety Report 15702853 (Version 1)
Quarter: 2018Q4

REPORT INFORMATION
  Report Type: Spontaneous
  Country: US (occurrence: US)
  Receive Date: 20181210
  Receipt Date: 20181210
  Transmission Date: 20190205
  Serious: Yes (Disabling)
  Sender: FDA-Public Use
  Company Number: None

PATIENT
  Age: 21 Year
  Sex: Female
  Weight: 62.1 kg

DRUGS (1)
  1. NEXPLANON [Suspect]
     Active Substance: ETONOGESTREL
     Indication: CONTRACEPTION
     Route: 058
     Dates: start: 20180615

REACTIONS (12)
  - Oropharyngeal pain [None]
  - Menorrhagia [None]
  - Dysgeusia [None]
  - Ear pain [None]
  - Abdominal distension [None]
  - Abdominal discomfort [None]
  - Crying [None]
  - Headache [None]
  - Depressed mood [None]
  - Mood swings [None]
  - Memory impairment [None]
  - Fatigue [None]

NARRATIVE: CASE EVENT DATE: 20180731
